FAERS Safety Report 13031989 (Version 2)
Quarter: 2017Q1

REPORT INFORMATION
  Report Type: Spontaneous
  Country: US (occurrence: US)
  Receive Date: 20161215
  Receipt Date: 20170207
  Transmission Date: 20170428
  Serious: No
  Sender: FDA-Public Use
  Company Number: US-PFIZER INC-2016572827

PATIENT
  Age: 46 Year
  Sex: Female

DRUGS (2)
  1. AMITRIPTYLINE [Suspect]
     Active Substance: AMITRIPTYLINE
     Indication: TOXIC NEUROPATHY
     Dosage: 25 MG, UNK
     Dates: start: 20160825
  2. GABAPENTIN. [Suspect]
     Active Substance: GABAPENTIN
     Indication: TOXIC NEUROPATHY
     Dosage: 300 MG, UNK
     Dates: start: 20160606, end: 20160701

REACTIONS (3)
  - Product use issue [Unknown]
  - Swelling face [Unknown]
  - Drug intolerance [Unknown]
